FAERS Safety Report 7235770-0 (Version None)
Quarter: 2011Q1

REPORT INFORMATION
  Report Type: 
  Country: None (occurrence: None)
  Receive Date: 20110120
  Receipt Date: 20110110
  Transmission Date: 20110831
  Serious: No
  Sender: FDA-Public Use
  Company Number: US-B.I. PHARMACEUTICALS,INC./RIDGEFIELD-2011-BP-01036BP

PATIENT
  Sex: Male

DRUGS (17)
  1. MULTIVITAMIN [Concomitant]
     Indication: PROPHYLAXIS
  2. ASA [Concomitant]
     Indication: PROPHYLAXIS
  3. TOPROL-XL [Concomitant]
     Indication: HYPERTENSION
  4. LASIX [Concomitant]
     Indication: CARDIAC FAILURE CONGESTIVE
  5. AVODART [Concomitant]
  6. DEPLIN [Concomitant]
     Indication: DEPRESSION
  7. SPIRONOLACTONE [Concomitant]
     Indication: CARDIAC FAILURE CONGESTIVE
  8. PROVENTIL [Concomitant]
  9. ZOCOR [Concomitant]
     Indication: DYSLIPIDAEMIA
  10. NEXIUM [Concomitant]
  11. AVAPRO [Concomitant]
     Indication: HYPERTENSION
  12. ZOLOFT [Concomitant]
     Indication: DEPRESSION
  13. POTASSIUM [Concomitant]
     Indication: PROPHYLAXIS
  14. METFORMIN [Concomitant]
     Indication: DIABETES MELLITUS
  15. AMIODARONE [Concomitant]
     Indication: ATRIAL FIBRILLATION
  16. PRADAXA [Suspect]
     Indication: ATRIAL FIBRILLATION
     Dosage: 300 MG
     Route: 048
     Dates: start: 20101101
  17. NORVASC [Concomitant]
     Indication: HYPERTENSION

REACTIONS (1)
  - CREATININE RENAL CLEARANCE [None]
